FAERS Safety Report 6215316-6 (Version None)
Quarter: 2009Q2

REPORT INFORMATION
  Report Type: 
  Country: None (occurrence: None)
  Receive Date: 20090604
  Receipt Date: 20090601
  Transmission Date: 20091009
  Serious: Yes (Death, Hospitalization, Other)
  Sender: FDA-Public Use
  Company Number: PHHY2009CN12246

PATIENT
  Sex: Female

DRUGS (8)
  1. TEGRETOL [Suspect]
     Indication: GLOSSODYNIA
     Dosage: 200 MG, QD
     Route: 048
     Dates: start: 20090302
  2. ORYZANOL [Concomitant]
     Indication: GLOSSODYNIA
  3. MULTI-VITAMINS [Concomitant]
     Indication: GLOSSODYNIA
  4. VITAMIN E [Concomitant]
     Indication: GLOSSODYNIA
  5. BI BAI KE [Concomitant]
     Indication: GLOSSODYNIA
  6. SODIUM BICARBONATE [Concomitant]
     Indication: GLOSSODYNIA
  7. COMPOUND CHAMOMILE AND LIDOCAINE HYDROCHLORIDE [Concomitant]
     Indication: GLOSSODYNIA
  8. ROXITHROMYCIN [Concomitant]
     Dosage: UNK
     Dates: start: 20090302, end: 20090313

REACTIONS (37)
  - ACID BASE BALANCE ABNORMAL [None]
  - ACUTE RESPIRATORY DISTRESS SYNDROME [None]
  - BLISTER [None]
  - BLOOD CHLORIDE INCREASED [None]
  - BLOOD GLUCOSE DECREASED [None]
  - BLOOD PRESSURE INCREASED [None]
  - DELIRIUM [None]
  - DIABETES MELLITUS [None]
  - ELECTROLYTE IMBALANCE [None]
  - ERYTHEMA MULTIFORME [None]
  - EYELID OEDEMA [None]
  - FUNGAL INFECTION [None]
  - GENITAL EROSION [None]
  - HAEMATEMESIS [None]
  - HAEMATURIA [None]
  - HEART RATE DECREASED [None]
  - HEART RATE INCREASED [None]
  - HYPERNATRAEMIA [None]
  - HYPOKALAEMIA [None]
  - IRRITABILITY [None]
  - LUNG INFECTION [None]
  - METABOLIC ACIDOSIS [None]
  - MOOD ALTERED [None]
  - OEDEMA [None]
  - OEDEMA MOUTH [None]
  - ORAL MUCOSA EROSION [None]
  - PAIN [None]
  - PUPILLARY LIGHT REFLEX TESTS ABNORMAL [None]
  - PYREXIA [None]
  - RALES [None]
  - RASH [None]
  - RASH PAPULAR [None]
  - RESPIRATORY ALKALOSIS [None]
  - RESPIRATORY RATE DECREASED [None]
  - TOXIC EPIDERMAL NECROLYSIS [None]
  - VIRAL INFECTION [None]
  - WHITE BLOOD CELL COUNT INCREASED [None]
